FAERS Safety Report 5386090-0 (Version None)
Quarter: 2007Q3

REPORT INFORMATION
  Report Type: 
  Country: None (occurrence: None)
  Receive Date: 20070710
  Receipt Date: 20070626
  Transmission Date: 20080115
  Serious: Yes (Life-Threatening, Hospitalization, Other)
  Sender: FDA-Public Use
  Company Number: T200700670

PATIENT
  Age: 72 Year
  Sex: Female

DRUGS (7)
  1. OPTIRAY 160 [Suspect]
     Indication: COMPUTERISED TOMOGRAM ABDOMEN
     Dosage: 100 ML, SINGLE, INTRAVENOUS
     Route: 042
     Dates: start: 20070605, end: 20070605
  2. MAGNESIUM OXIDE HEAVY (MAGNESIUM OXIDE HEAVY) [Concomitant]
  3. RANITIDINE HYDROCHLORIDE [Concomitant]
  4. SENNOSIDE (SENNOSIDE A+B CALCIUM) [Concomitant]
  5. FERROUS FUMARATE [Concomitant]
  6. GLYCYRRHIZIC ACID DL-MENTHIONINE COMBINED DRUG (GLYCYRRHIZIC ACID DL-M [Concomitant]
  7. PANCREATIC ENZYME COMBINED DRUG (PANCREATIC ENZYME COMBINED DRUG) [Concomitant]

REACTIONS (3)
  - ANAPHYLACTIC SHOCK [None]
  - OXYGEN SATURATION DECREASED [None]
  - PAIN IN EXTREMITY [None]
